FAERS Safety Report 9513004 (Version 1)
Quarter: 2013Q3

REPORT INFORMATION
  Report Type: Spontaneous
  Country: US (occurrence: US)
  Receive Date: 20130910
  Receipt Date: 20130910
  Transmission Date: 20140515
  Serious: No
  Sender: FDA-Public Use
  Company Number: US-PFIZER INC-2013257519

PATIENT
  Age: 53 Year
  Sex: Female
  Weight: 95.69 kg

DRUGS (6)
  1. GENOTROPIN MQ [Suspect]
     Indication: HORMONE THERAPY
     Dosage: 0.4 MG, UNK
     Route: 058
     Dates: start: 2011
  2. LEVOTHYROXINE [Concomitant]
     Dosage: 137 MG, UNK
  3. METOPROLOL [Concomitant]
     Indication: HYPERTENSION
     Dosage: 100 MG, UNK
  4. XANAX [Concomitant]
     Dosage: UNK
  5. VIIBRYD [Concomitant]
     Dosage: 40 MG, UNK
  6. ADDERALL [Concomitant]
     Dosage: 30 MG, UNK

REACTIONS (9)
  - Periarthritis [Unknown]
  - Pain [Unknown]
  - Diarrhoea [Unknown]
  - Movement disorder [Unknown]
  - Pain in extremity [Unknown]
  - Musculoskeletal pain [Unknown]
  - Insomnia [Unknown]
  - Tremor [Unknown]
  - Drug ineffective [Unknown]
